FAERS Safety Report 7282147-8 (Version None)
Quarter: 2011Q1

REPORT INFORMATION
  Report Type: 
  Country: None (occurrence: None)
  Receive Date: 20110208
  Receipt Date: 20110202
  Transmission Date: 20110831
  Serious: Yes (Other)
  Sender: FDA-Public Use
  Company Number: BR-PFIZER INC-2011023744

PATIENT
  Age: 26 Year
  Sex: Female
  Weight: 69 kg

DRUGS (1)
  1. DOSTINEX [Suspect]
     Indication: LACTATION INHIBITION THERAPY
     Dosage: 0.5 MG, 2X/DAY, EVERY 12 HOURS
     Route: 048
     Dates: start: 20110129

REACTIONS (5)
  - BREAST DISCHARGE [None]
  - LACTATION PUERPERAL INCREASED [None]
  - BREAST MASS [None]
  - MUSCULOSKELETAL STIFFNESS [None]
  - BREAST DISORDER [None]
